FAERS Safety Report 4835897-4 (Version None)
Quarter: 2005Q4

REPORT INFORMATION
  Report Type: 
  Country: None (occurrence: None)
  Receive Date: 20051118
  Receipt Date: 20051028
  Transmission Date: 20060501
  Serious: Yes (Other)
  Sender: FDA-Public Use
  Company Number: 099241

PATIENT
  Age: 40 Year
  Sex: Female

DRUGS (2)
  1. HERCEPTIN [Suspect]
     Indication: BREAST CANCER METASTATIC
     Dosage: 225 MG, 1/WEEK, INTRAVENOUS
     Route: 042
  2. PACLITAXEL [Suspect]
     Indication: BREAST CANCER METASTATIC
     Dosage: 160 MG, 1/WEEK, INTRAVENOUS
     Route: 042

REACTIONS (7)
  - EPIDERMAL NECROSIS [None]
  - ONYCHOLYSIS [None]
  - PHOTOSENSITIVITY REACTION [None]
  - PORPHYRINS URINE INCREASED [None]
  - SKIN HYPERPIGMENTATION [None]
  - URINE DELTA AMINOLEVULINATE INCREASED [None]
  - URINE PORPHOBILINOGEN INCREASED [None]
